FAERS Safety Report 19784461 (Version 2)
Quarter: 2022Q1

REPORT INFORMATION
  Report Type: Spontaneous
  Country: US (occurrence: US)
  Receive Date: 20210903
  Receipt Date: 20220104
  Transmission Date: 20220424
  Serious: Yes (Other)
  Sender: FDA-Public Use
  Company Number: US-GILEAD-2021-0546856

PATIENT
  Age: 48 Year
  Sex: Male

DRUGS (5)
  1. TRUVADA [Suspect]
     Active Substance: EMTRICITABINE\TENOFOVIR DISOPROXIL FUMARATE
     Indication: HIV infection
     Dosage: UNK
     Route: 048
     Dates: start: 20131002, end: 20151026
  2. TRUVADA [Suspect]
     Active Substance: EMTRICITABINE\TENOFOVIR DISOPROXIL FUMARATE
     Dosage: UNK
     Route: 048
     Dates: start: 20040802, end: 20191231
  3. ATRIPLA [Suspect]
     Active Substance: EFAVIRENZ\EMTRICITABINE\TENOFOVIR DISOPROXIL FUMARATE
     Indication: HIV infection
     Dosage: UNK
     Route: 065
     Dates: start: 20130823, end: 20131002
  4. STRIBILD [Suspect]
     Active Substance: COBICISTAT\ELVITEGRAVIR\EMTRICITABINE\TENOFOVIR DISOPROXIL FUMARATE
     Indication: HIV infection
     Dosage: UNK
     Route: 065
     Dates: start: 20151125, end: 20160622
  5. GENVOYA [Concomitant]
     Active Substance: COBICISTAT\ELVITEGRAVIR\EMTRICITABINE\TENOFOVIR ALAFENAMIDE FUMARATE

REACTIONS (9)
  - Multiple fractures [Recovered/Resolved]
  - Osteonecrosis [Unknown]
  - Chronic kidney disease [Unknown]
  - Fanconi syndrome acquired [Not Recovered/Not Resolved]
  - Renal failure [Unknown]
  - Bone density decreased [Not Recovered/Not Resolved]
  - Bone loss [Unknown]
  - Renal impairment [Not Recovered/Not Resolved]
  - Protein total abnormal [Not Recovered/Not Resolved]

NARRATIVE: CASE EVENT DATE: 20140101
